FAERS Safety Report 23394404 (Version 2)
Quarter: 2024Q1

REPORT INFORMATION
  Report Type: Report from Study
  Country: CA (occurrence: CA)
  Receive Date: 20240111
  Receipt Date: 20240118
  Transmission Date: 20240410
  Serious: Yes (Hospitalization)
  Sender: FDA-Public Use
  Company Number: CA-ABBVIE-5581771

PATIENT
  Sex: Female

DRUGS (1)
  1. SKYRIZI [Suspect]
     Active Substance: RISANKIZUMAB-RZAA
     Indication: Crohn^s disease
     Route: 058
     Dates: start: 20230720

REACTIONS (8)
  - Decreased appetite [Recovered/Resolved]
  - Hypophagia [Unknown]
  - Nausea [Unknown]
  - Vomiting projectile [Unknown]
  - Abdominal pain [Unknown]
  - Aphthous ulcer [Unknown]
  - Weight decreased [Unknown]
  - Helicobacter infection [Unknown]

NARRATIVE: CASE EVENT DATE: 20230101
